FAERS Safety Report 21451515 (Version 1)
Quarter: 2022Q4

REPORT INFORMATION
  Report Type: Spontaneous
  Country: US (occurrence: US)
  Receive Date: 20221013
  Receipt Date: 20221013
  Transmission Date: 20230112
  Serious: No
  Sender: FDA-Public Use
  Company Number: US-TEVA-2022-US-2078894

PATIENT
  Sex: Male

DRUGS (1)
  1. CLONIDINE [Suspect]
     Active Substance: CLONIDINE
     Indication: Product used for unknown indication
     Route: 062

REACTIONS (2)
  - Application site erythema [Unknown]
  - Product adhesion issue [Unknown]
